FAERS Safety Report 7269944-X (Version None)
Quarter: 2011Q1

REPORT INFORMATION
  Report Type: 
  Country: None (occurrence: None)
  Receive Date: 20110202
  Receipt Date: 20110126
  Transmission Date: 20110831
  Serious: Yes (Hospitalization)
  Sender: FDA-Public Use
  Company Number: BR-US-EMD SERONO, INC.-7038684

PATIENT
  Sex: Female

DRUGS (6)
  1. SOMALGIN [Concomitant]
  2. TEGRETOL [Concomitant]
  3. CAPTOPRIL [Concomitant]
  4. ATENOLOL [Concomitant]
  5. TOFRANIL [Concomitant]
  6. REBIF [Suspect]
     Indication: RELAPSING-REMITTING MULTIPLE SCLEROSIS
     Dates: start: 20090801

REACTIONS (2)
  - PNEUMONIA [None]
  - DYSPHAGIA [None]
